FAERS Safety Report 5853375-0 (Version None)
Quarter: 2008Q3

REPORT INFORMATION
  Report Type: 
  Country: None (occurrence: None)
  Receive Date: 20080821
  Receipt Date: 20080812
  Transmission Date: 20090109
  Serious: Yes (Other)
  Sender: FDA-Public Use
  Company Number: US-PFIZER INC-2008061370

PATIENT
  Sex: Female
  Weight: 72.727 kg

DRUGS (11)
  1. CHANTIX [Suspect]
     Indication: SMOKING CESSATION THERAPY
  2. CYCLOBENZAPRINE HCL [Interacting]
  3. OMEPRAZOLE [Concomitant]
  4. ATENOLOL [Concomitant]
  5. FENTANYL-25 [Concomitant]
     Indication: PAIN
  6. NABUMETONE [Concomitant]
  7. DIAZEPAM [Concomitant]
  8. ALBUTEROL [Concomitant]
  9. TYLENOL (CAPLET) [Concomitant]
  10. METOPROLOL TARTRATE [Concomitant]
  11. ZOLPIDEM [Concomitant]

REACTIONS (5)
  - ANXIETY [None]
  - DISTURBANCE IN SEXUAL AROUSAL [None]
  - DRUG INTERACTION [None]
  - MUSCLE SPASMS [None]
  - PARAESTHESIA [None]
